FAERS Safety Report 12493021 (Version 3)
Quarter: 2016Q3

REPORT INFORMATION
  Report Type: Spontaneous
  Country: US (occurrence: US)
  Receive Date: 20160623
  Receipt Date: 20160919
  Transmission Date: 20161109
  Serious: Yes (Other)
  Sender: FDA-Public Use
  Company Number: US-GLAXOSMITHKLINE-US2016088707

PATIENT
  Age: 69 Year
  Sex: Female

DRUGS (1)
  1. KERI ORIGINAL [Suspect]
     Active Substance: LANOLIN\MINERAL OIL
     Indication: PRODUCT USED FOR UNKNOWN INDICATION
     Dosage: UNK

REACTIONS (2)
  - Knee arthroplasty [Not Recovered/Not Resolved]
  - Product quality issue [Unknown]
